FAERS Safety Report 17668408 (Version 1)
Quarter: 2020Q2

REPORT INFORMATION
  Report Type: Report from Study
  Country: US (occurrence: US)
  Receive Date: 20200414
  Receipt Date: 20200414
  Transmission Date: 20200713
  Serious: Yes (Death, Hospitalization, Other)
  Sender: FDA-Public Use
  Company Number: US-BEH-2020112273

PATIENT
  Age: 82 Year
  Sex: Female
  Weight: 67.12 kg

DRUGS (1)
  1. HIZENTRA [Suspect]
     Active Substance: HUMAN IMMUNOGLOBULIN G
     Indication: IMMUNODEFICIENCY COMMON VARIABLE
     Dosage: 10 GRAM, QW
     Route: 058
     Dates: start: 20190301, end: 20200204

REACTIONS (6)
  - Acute respiratory failure [Unknown]
  - Lung adenocarcinoma [Fatal]
  - Pulmonary amyloidosis [Unknown]
  - Cerebrovascular accident [Unknown]
  - Aspiration [Unknown]
  - Chronic obstructive pulmonary disease [Unknown]

NARRATIVE: CASE EVENT DATE: 2020
